FAERS Safety Report 4428944-5 (Version None)
Quarter: 2004Q3

REPORT INFORMATION
  Report Type: 
  Country: None (occurrence: None)
  Receive Date: 20040818
  Receipt Date: 20040408
  Transmission Date: 20050211
  Serious: No
  Sender: FDA-Public Use
  Company Number: US-GLAXOSMITHKLINE-A0506395A

PATIENT
  Age: 39 Year
  Sex: Female
  Weight: 66.4 kg

DRUGS (5)
  1. LOTRONEX [Suspect]
     Indication: IRRITABLE BOWEL SYNDROME
     Dosage: 1MG PER DAY
     Route: 048
     Dates: start: 20030317
  2. FESO4 [Concomitant]
  3. LEVOTHYROXINE SODIUM [Concomitant]
  4. M.V.I. [Concomitant]
  5. PAXIL [Concomitant]
     Route: 048

REACTIONS (1)
  - FAECES DISCOLOURED [None]
